FAERS Safety Report 4639180-1 (Version None)
Quarter: 2005Q2

REPORT INFORMATION
  Report Type: 
  Country: None (occurrence: None)
  Receive Date: 20050419
  Receipt Date: 20050217
  Transmission Date: 20051028
  Serious: Yes (Other)
  Sender: FDA-Public Use
  Company Number: PHEH2005US02208

PATIENT
  Age: 77 Year
  Sex: Female

DRUGS (3)
  1. AREDIA [Suspect]
     Indication: OSTEOPOROSIS
     Dosage: UNK, ONCE/SINGLE
     Dates: start: 20050105, end: 20050105
  2. FOSAMAX [Suspect]
     Indication: OSTEOPOROSIS
     Dosage: 70MG Q2WKS
     Dates: end: 20050218
  3. MIACALCIN [Suspect]
     Indication: OSTEOPOROSIS
     Dosage: 200 IU, QD
     Route: 045
     Dates: end: 20050220

REACTIONS (3)
  - BONE DISORDER [None]
  - NAUSEA [None]
  - POST PROCEDURAL HAEMORRHAGE [None]
